FAERS Safety Report 6078391-8 (Version None)
Quarter: 2009Q1

REPORT INFORMATION
  Report Type: 
  Country: None (occurrence: None)
  Receive Date: 20090212
  Receipt Date: 20090130
  Transmission Date: 20090719
  Serious: Yes (Hospitalization)
  Sender: FDA-Public Use
  Company Number: 2009-190695-NL

PATIENT
  Age: 48 Year
  Sex: Male
  Weight: 68 kg

DRUGS (5)
  1. REMERON [Suspect]
     Dosage: ORAL
     Route: 048
  2. BENZODIAZEPINE [Suspect]
  3. TRICYCLIC ANTIDEPRESSANTS [Suspect]
  4. COCAINE [Suspect]
  5. ALCOHOL [Suspect]

REACTIONS (5)
  - ACCIDENTAL OVERDOSE [None]
  - DRUG INTERACTION [None]
  - INCOHERENT [None]
  - INTENTIONAL OVERDOSE [None]
  - UNRESPONSIVE TO STIMULI [None]
